FAERS Safety Report 5036499-X (Version None)
Quarter: 2006Q2

REPORT INFORMATION
  Report Type: 
  Country: None (occurrence: None)
  Receive Date: 20060623
  Receipt Date: 20060607
  Transmission Date: 20061013
  Serious: Yes (Hospitalization)
  Sender: FDA-Public Use
  Company Number: FR200606001644

PATIENT
  Age: 24 Month
  Sex: Male

DRUGS (1)
  1. HUMATROPE [Suspect]
     Dosage: DAILY 1/D, SUBCUTANEOUS
     Route: 058
     Dates: start: 20060516

REACTIONS (2)
  - MUSCULOSKELETAL STIFFNESS [None]
  - SEPSIS [None]
